FAERS Safety Report 7405288-0 (Version None)
Quarter: 2011Q2

REPORT INFORMATION
  Report Type: 
  Country: None (occurrence: None)
  Receive Date: 20110411
  Receipt Date: 20110327
  Transmission Date: 20111010
  Serious: No
  Sender: FDA-Public Use
  Company Number: PHHY2011JP21469

PATIENT
  Age: 8 Year
  Sex: Female

DRUGS (4)
  1. TEGRETOL [Suspect]
     Indication: FRONTAL LOBE EPILEPSY
  2. ZONISAMIDE [Concomitant]
     Indication: FRONTAL LOBE EPILEPSY
  3. CLONAZEPAM [Concomitant]
  4. VALPROATE SODIUM [Concomitant]
     Indication: FRONTAL LOBE EPILEPSY

REACTIONS (1)
  - SOMNOLENCE [None]
